FAERS Safety Report 25028007 (Version 1)
Quarter: 2025Q1

REPORT INFORMATION
  Report Type: Spontaneous
  Country: US (occurrence: US)
  Receive Date: 20250301
  Receipt Date: 20250301
  Transmission Date: 20250409
  Serious: No
  Sender: SANOFI AVENTIS
  Company Number: US-SA-2025SA060498

PATIENT
  Age: 44 Year
  Sex: Female

DRUGS (5)
  1. DUPIXENT [Suspect]
     Active Substance: DUPILUMAB
     Indication: Dermatitis atopic
     Route: 058
     Dates: start: 20230623
  2. GABAPENTIN [Concomitant]
     Active Substance: GABAPENTIN
  3. MUPIROCIN CALCIUM [Concomitant]
     Active Substance: MUPIROCIN CALCIUM
  4. STRATTERA [Concomitant]
     Active Substance: ATOMOXETINE HYDROCHLORIDE
  5. VALTREX [Concomitant]
     Active Substance: VALACYCLOVIR HYDROCHLORIDE

REACTIONS (1)
  - Eczema [Unknown]

NARRATIVE: CASE EVENT DATE: 20250225
